FAERS Safety Report 13560110 (Version 1)
Quarter: 2017Q2

REPORT INFORMATION
  Report Type: Spontaneous
  Country: US (occurrence: US)
  Receive Date: 20170518
  Receipt Date: 20170518
  Transmission Date: 20170830
  Serious: No
  Sender: FDA-Public Use
  Company Number: US-PFIZER INC-2017212511

PATIENT
  Age: 65 Year
  Sex: Female

DRUGS (1)
  1. ALDACTONE [Suspect]
     Active Substance: SPIRONOLACTONE
     Indication: PULMONARY CONGESTION
     Dosage: UNK

REACTIONS (1)
  - Drug ineffective for unapproved indication [Unknown]
